FAERS Safety Report 7067583-7 (Version None)
Quarter: 2010Q4

REPORT INFORMATION
  Report Type: 
  Country: None (occurrence: None)
  Receive Date: 20101028
  Receipt Date: 20101027
  Transmission Date: 20110411
  Serious: Yes (Hospitalization, Other)
  Sender: FDA-Public Use
  Company Number: IT-BRISTOL-MYERS SQUIBB COMPANY-15353451

PATIENT
  Age: 87 Year
  Sex: Female

DRUGS (7)
  1. COUMADIN [Suspect]
     Indication: CARDIAC PACEMAKER REPLACEMENT
     Dosage: 1DF=1 POSOLOGIC UNIT,DRUG INTERRUPTED ON 19OCT10
     Route: 048
     Dates: start: 20091001
  2. AUGMENTIN '125' [Concomitant]
     Dosage: AUGMENTIN 875MG+125MG FILM COATED ORAL TABS 1DF=1 POSOLOGIC UNITS
     Route: 048
     Dates: start: 20101012, end: 20101020
  3. LASIX [Concomitant]
     Dosage: LASIX TABS
  4. TACHIDOL [Concomitant]
     Indication: ARTHRALGIA
     Dosage: 500MG+30MG EFFERVESCENT GRANULES ORAL SACHETS 1DF= 1 POSOLOGIC UNIT
     Route: 048
     Dates: start: 20101012, end: 20101018
  5. ALDACTONE [Concomitant]
     Dosage: 1DF=1 POSOLOGIC UNITS ALDACTONE 25MG CAPS
  6. FOSAMAX [Concomitant]
     Dosage: FOSOMAX 70MG TABS 1DF=70MG TABS
  7. FERROGRAD C [Concomitant]

REACTIONS (5)
  - ANAEMIA [None]
  - CONTUSION [None]
  - FALL [None]
  - HAEMATOMA [None]
  - INTERNATIONAL NORMALISED RATIO DECREASED [None]
